FAERS Safety Report 19408020 (Version 1)
Quarter: 2021Q2

REPORT INFORMATION
  Report Type: Spontaneous
  Country: US (occurrence: US)
  Receive Date: 20210611
  Receipt Date: 20210611
  Transmission Date: 20210717
  Serious: Yes (Death, Other)
  Sender: FDA-Public Use
  Company Number: US-FRESENIUS KABI-FK202105996

PATIENT
  Age: 29 Year
  Sex: Male

DRUGS (2)
  1. ESCITALOPRAM [Suspect]
     Active Substance: ESCITALOPRAM OXALATE
     Indication: ACUTE PSYCHOSIS
     Route: 065
  2. VALPROATE [Suspect]
     Active Substance: VALPROIC ACID
     Indication: ACUTE PSYCHOSIS
     Route: 065

REACTIONS (2)
  - Unmasking of previously unidentified disease [Unknown]
  - Hyperammonaemic encephalopathy [Fatal]
